FAERS Safety Report 14604123 (Version 1)
Quarter: 2018Q1

REPORT INFORMATION
  Report Type: Report from Study
  Country: ES (occurrence: ES)
  Receive Date: 20180306
  Receipt Date: 20180306
  Transmission Date: 20180509
  Serious: Yes (Hospitalization)
  Sender: FDA-Public Use
  Company Number: ES-PFIZER INC-2018090572

PATIENT
  Age: 48 Year
  Sex: Male

DRUGS (10)
  1. 5-FU /00098801/ [Suspect]
     Active Substance: FLUOROURACIL
     Dosage: 643.2 MG, 2X/WEEK
     Route: 040
     Dates: start: 20170724, end: 20170724
  2. CALCIUM FOLINATE [Suspect]
     Active Substance: LEUCOVORIN CALCIUM
     Indication: RECTAL CANCER
     Dosage: 804 MG, CYCLIC
     Route: 042
     Dates: start: 20170630, end: 20170630
  3. 5-FU /00098801/ [Suspect]
     Active Substance: FLUOROURACIL
     Dosage: 3859.2 MG, 2X/WEEK
     Route: 042
     Dates: start: 20170630, end: 20170630
  4. AFLIBERCEPT [Suspect]
     Active Substance: AFLIBERCEPT
     Indication: RECTAL CANCER
     Dosage: 170 MG, 2X/WEEK
     Route: 042
     Dates: start: 20170630, end: 20170630
  5. IRINOTECAN HCL [Suspect]
     Active Substance: IRINOTECAN HYDROCHLORIDE
     Indication: RECTAL CANCER
     Dosage: 289.44 MG, 2X/WEEK
     Route: 042
     Dates: start: 20170630, end: 20170630
  6. 5-FU /00098801/ [Suspect]
     Active Substance: FLUOROURACIL
     Indication: RECTAL CANCER
     Dosage: 643.2 MG, 2X/WEEK
     Route: 040
     Dates: start: 20170630, end: 20170630
  7. AFLIBERCEPT [Suspect]
     Active Substance: AFLIBERCEPT
     Dosage: 170 MG, 2X/WEEK
     Route: 042
     Dates: start: 20170724, end: 20170724
  8. IRINOTECAN HCL [Suspect]
     Active Substance: IRINOTECAN HYDROCHLORIDE
     Dosage: 289.44 MG, 2X/WEEK
     Route: 042
     Dates: start: 20170724, end: 20170724
  9. 5-FU /00098801/ [Suspect]
     Active Substance: FLUOROURACIL
     Dosage: 3859.2 MG, 2X/WEEK
     Route: 042
     Dates: start: 20170724, end: 20170724
  10. CALCIUM FOLINATE [Suspect]
     Active Substance: LEUCOVORIN CALCIUM
     Dosage: 804 MG, CYCLIC
     Route: 042
     Dates: start: 20170724, end: 20170724

REACTIONS (1)
  - Acute kidney injury [Recovered/Resolved]

NARRATIVE: CASE EVENT DATE: 20170731
